FAERS Safety Report 4755693-6 (Version None)
Quarter: 2005Q3

REPORT INFORMATION
  Report Type: 
  Country: None (occurrence: None)
  Receive Date: 20050830
  Receipt Date: 20050707
  Transmission Date: 20060218
  Serious: No
  Sender: FDA-Public Use
  Company Number: US-BRISTOL-MYERS SQUIBB COMPANY-13028550

PATIENT
  Sex: Male
  Weight: 73 kg

DRUGS (4)
  1. ABILIFY [Suspect]
  2. LITHIUM [Concomitant]
  3. SEROQUEL [Concomitant]
  4. LAMICTAL [Concomitant]

REACTIONS (2)
  - DYSTONIA [None]
  - SWOLLEN TONGUE [None]
